FAERS Safety Report 7417995-4 (Version None)
Quarter: 2011Q2

REPORT INFORMATION
  Report Type: 
  Country: None (occurrence: None)
  Receive Date: 20110415
  Receipt Date: 20110404
  Transmission Date: 20111010
  Serious: Yes (Other)
  Sender: FDA-Public Use
  Company Number: DE-ROCHE-763668

PATIENT
  Sex: Female
  Weight: 63 kg

DRUGS (6)
  1. IBANDRONIC ACID [Suspect]
     Indication: OSTEOPOROSIS
     Route: 042
     Dates: start: 20100723
  2. CEFUROXIME [Concomitant]
  3. D3-VICOTRAT [Concomitant]
  4. BEPANTHEN SALBE [Concomitant]
  5. RIVANOL [Concomitant]
  6. CALCIUM VERLA [Concomitant]

REACTIONS (2)
  - ERYSIPELAS [None]
  - DRUG HYPERSENSITIVITY [None]
